FAERS Safety Report 10005976 (Version 1)
Quarter: 2014Q1

REPORT INFORMATION
  Report Type: Spontaneous
  Country: FR (occurrence: FR)
  Receive Date: 20140313
  Receipt Date: 20140313
  Transmission Date: 20141002
  Serious: Yes (Other)
  Sender: FDA-Public Use
  Company Number: FR-JNJFOC-20140218529

PATIENT
  Age: 54 Year
  Sex: Female

DRUGS (9)
  1. CAELYX (DOXORUBICIN HYDROCHLORIDE) [Suspect]
     Indication: OVARIAN CANCER
     Route: 042
     Dates: start: 20131226
  2. CAELYX (DOXORUBICIN HYDROCHLORIDE) [Suspect]
     Indication: OVARIAN CANCER
     Route: 042
     Dates: start: 20131128, end: 20131128
  3. POLARAMINE NOS [Concomitant]
     Indication: PREMEDICATION
     Route: 042
  4. ZOPHREN [Concomitant]
     Indication: PREMEDICATION
     Route: 042
  5. VOGALENE [Concomitant]
     Indication: PREMEDICATION
     Route: 065
  6. BECILAN [Concomitant]
     Indication: PREMEDICATION
     Route: 065
  7. SOLUMEDROL (METHYLPREDNISOLONE SODIUM SUCCINATE) [Concomitant]
     Indication: PREMEDICATION
     Route: 065
  8. AZANTAC [Concomitant]
     Indication: PREMEDICATION
     Route: 065
  9. METHYLPREDNISOLONE [Concomitant]
     Indication: PREMEDICATION
     Route: 065

REACTIONS (5)
  - Prurigo [Unknown]
  - Chest pain [Recovered/Resolved]
  - Headache [Recovered/Resolved]
  - Hypotension [Recovered/Resolved]
  - Infusion related reaction [Recovered/Resolved]
